FAERS Safety Report 14608096 (Version 2)
Quarter: 2018Q1

REPORT INFORMATION
  Report Type: Spontaneous
  Country: TR (occurrence: TR)
  Receive Date: 20180307
  Receipt Date: 20180330
  Transmission Date: 20180509
  Serious: Yes (Other)
  Sender: FDA-Public Use
  Company Number: US-ALLERGAN-1810344US

PATIENT
  Age: 35 Year
  Sex: Male

DRUGS (2)
  1. MESALAZINE UNK [Suspect]
     Active Substance: MESALAMINE
     Dosage: UNK
     Route: 054
  2. MESALAZINE UNK [Suspect]
     Active Substance: MESALAMINE
     Indication: COLITIS ULCERATIVE
     Dosage: UNK
     Route: 048

REACTIONS (2)
  - Fixed eruption [Recovered/Resolved with Sequelae]
  - Dermatitis bullous [Recovered/Resolved with Sequelae]
